FAERS Safety Report 15417722 (Version 1)
Quarter: 2018Q3

REPORT INFORMATION
  Report Type: Spontaneous
  Country: RU (occurrence: RU)
  Receive Date: 20180924
  Receipt Date: 20180924
  Transmission Date: 20181010
  Serious: Yes (Other)
  Sender: FDA-Public Use
  Company Number: RU-BAYER-2018-173900

PATIENT
  Age: 55 Year
  Sex: Female

DRUGS (2)
  1. MIRENA [Suspect]
     Active Substance: LEVONORGESTREL
     Indication: MENORRHAGIA
     Dosage: 20 MCG/24HR, CONT
     Route: 015
     Dates: start: 201111
  2. MIRENA [Suspect]
     Active Substance: LEVONORGESTREL
     Indication: ENDOMETRIAL HYPERPLASIA
     Dosage: 20 MCG/24HR, CONT
     Route: 015
     Dates: start: 201611, end: 20170822

REACTIONS (4)
  - Product use in unapproved indication [None]
  - Uterine cancer [None]
  - Device expulsion [None]
  - Off label use of device [None]

NARRATIVE: CASE EVENT DATE: 2017
